FAERS Safety Report 25755063 (Version 1)
Quarter: 2025Q3

REPORT INFORMATION
  Report Type: Spontaneous
  Country: GB (occurrence: GB)
  Receive Date: 20250903
  Receipt Date: 20250903
  Transmission Date: 20251020
  Serious: Yes (Disabling, Other)
  Sender: TEVA
  Company Number: GB-MHRA-WEBRADR-202509010845535050-DCYTG

PATIENT
  Age: 79 Month
  Sex: Male
  Weight: 90 kg

DRUGS (1)
  1. PRAMIPEXOLE [Suspect]
     Active Substance: PRAMIPEXOLE
     Indication: Restless legs syndrome
     Route: 048
     Dates: start: 20250830, end: 20250831

REACTIONS (1)
  - Hangover [Recovered/Resolved]

NARRATIVE: CASE EVENT DATE: 20250830
